FAERS Safety Report 9400150 (Version 1)
Quarter: 2013Q3

REPORT INFORMATION
  Report Type: Spontaneous
  Country: US (occurrence: US)
  Receive Date: 20130715
  Receipt Date: 20130715
  Transmission Date: 20140515
  Serious: No
  Sender: FDA-Public Use
  Company Number: US-PFIZER INC-2013205481

PATIENT
  Age: 77 Year
  Sex: Female
  Weight: 54.88 kg

DRUGS (4)
  1. ADVIL PM [Suspect]
     Indication: INSOMNIA
     Dosage: TWO ^LIQUIGELS^, ONCE A DAY
     Route: 048
  2. VITAMIN B12 [Concomitant]
     Dosage: 1000 UG, UNK
  3. VITAMIN C [Concomitant]
     Dosage: UNK
  4. BABY ASPIRIN [Concomitant]
     Dosage: UNK, ONCE A DAY

REACTIONS (2)
  - Off label use [Recovered/Resolved]
  - Abdominal pain upper [Recovered/Resolved]
